FAERS Safety Report 6520527-6 (Version None)
Quarter: 2009Q4

REPORT INFORMATION
  Report Type: 
  Country: None (occurrence: None)
  Receive Date: 20091229
  Receipt Date: 20091217
  Transmission Date: 20100525
  Serious: Yes (Other)
  Sender: FDA-Public Use
  Company Number: B0619891A

PATIENT
  Age: 35 Year
  Sex: Female

DRUGS (1)
  1. FORMIGRAN [Suspect]
     Indication: MIGRAINE
     Route: 065

REACTIONS (4)
  - CIRCULATORY COLLAPSE [None]
  - NAUSEA [None]
  - PANIC REACTION [None]
  - TACHYCARDIA [None]
